FAERS Safety Report 5644968-4 (Version None)
Quarter: 2008Q1

REPORT INFORMATION
  Report Type: 
  Country: None (occurrence: None)
  Receive Date: 20080229
  Receipt Date: 20071211
  Transmission Date: 20080703
  Serious: No
  Sender: FDA-Public Use
  Company Number: A0696986A

PATIENT
  Age: 38 Year
  Sex: Female

DRUGS (2)
  1. VALTREX [Suspect]
     Indication: PROPHYLAXIS
     Dosage: 1G PER DAY
     Route: 048
     Dates: start: 20071121, end: 20071130
  2. ZYRTEC [Concomitant]
     Indication: PRURITUS
     Dosage: 10MG PER DAY
     Route: 048
     Dates: start: 20071127, end: 20071128

REACTIONS (2)
  - FLUSHING [None]
  - RASH [None]
